FAERS Safety Report 5793504-0 (Version None)
Quarter: 2008Q2

REPORT INFORMATION
  Report Type: 
  Country: None (occurrence: None)
  Receive Date: 20080627
  Receipt Date: 20080618
  Transmission Date: 20081010
  Serious: Yes (Death)
  Sender: FDA-Public Use
  Company Number: ZA-JNJFOC-20080601615

PATIENT
  Sex: Female
  Weight: 59 kg

DRUGS (6)
  1. RISPERDAL CONSTA [Suspect]
     Dosage: THE NEXT DOSE WAS DUE ON 09-JUN-2008
     Route: 030
  2. RISPERDAL CONSTA [Suspect]
     Indication: SCHIZOPHRENIA, PARANOID TYPE
     Route: 030
  3. PROSAC [Concomitant]
     Indication: DEPRESSION
     Route: 048
  4. PUR-BLOKA [Concomitant]
     Indication: AKATHISIA
  5. CLONAZEPAM [Concomitant]
     Indication: AKATHISIA
  6. SEREPAX [Concomitant]
     Indication: ANXIETY

REACTIONS (1)
  - COMPLETED SUICIDE [None]
